FAERS Safety Report 7190213-0 (Version None)
Quarter: 2010Q4

REPORT INFORMATION
  Report Type: 
  Country: None (occurrence: None)
  Receive Date: 20101223
  Receipt Date: 20101217
  Transmission Date: 20110411
  Serious: Yes (Hospitalization, Disabling)
  Sender: FDA-Public Use
  Company Number: FR-PFIZER INC-2010161698

PATIENT
  Age: 74 Year
  Sex: Female
  Weight: 70 kg

DRUGS (9)
  1. ARGATROBAN [Suspect]
     Indication: HEPARIN-INDUCED THROMBOCYTOPENIA
     Dosage: 1.19 UG/KG/MIN, RATE OF 5.0 ML/H
     Route: 042
     Dates: start: 20101110, end: 20101123
  2. TAHOR [Concomitant]
     Dosage: 10 MG, 1X/DAY
     Route: 048
     Dates: start: 20101023, end: 20101122
  3. PLAVIX [Concomitant]
     Dosage: 75 MG, 1X/DAY
     Route: 048
     Dates: start: 20101109, end: 20101114
  4. PERINDOPRIL ERBUMINE [Concomitant]
     Dosage: 5 MG, 1X/DAY
     Route: 048
     Dates: start: 20101110, end: 20101122
  5. COUMADIN [Concomitant]
     Dosage: 5 MG, 1X/DAY
     Route: 048
     Dates: start: 20101113, end: 20101115
  6. DAFALGAN [Concomitant]
     Dosage: 500 UNIT UNSPECIFIED, DAILY
     Route: 048
     Dates: start: 20101116, end: 20101122
  7. ATARAX [Concomitant]
     Dosage: 15 UNK, DAILY
     Route: 048
     Dates: start: 20101121, end: 20101122
  8. CORDARONE [Concomitant]
     Dosage: 2 DF, 1X/DAY
     Route: 048
     Dates: start: 20101122
  9. CONTRAMAL [Concomitant]
     Dosage: 50 UNK, DAILY
     Dates: start: 20101122, end: 20101124

REACTIONS (4)
  - DISSEMINATED INTRAVASCULAR COAGULATION [None]
  - INFECTION [None]
  - THROMBOCYTOPENIA [None]
  - THROMBOSIS [None]
